FAERS Safety Report 19067466 (Version 1)
Quarter: 2021Q1

REPORT INFORMATION
  Report Type: Spontaneous
  Country: SI (occurrence: SI)
  Receive Date: 20210329
  Receipt Date: 20210329
  Transmission Date: 20210420
  Serious: Yes (Hospitalization, Other)
  Sender: FDA-Public Use
  Company Number: SI-B.I. PHARMACEUTICALS,INC./RIDGEFIELD-2021-BI-092022

PATIENT
  Age: 76 Year
  Sex: Male
  Weight: 75 kg

DRUGS (4)
  1. PRADAXA [Suspect]
     Active Substance: DABIGATRAN ETEXILATE MESYLATE
     Indication: ATRIAL FIBRILLATION
     Route: 065
     Dates: start: 20201026, end: 20201104
  2. OFEV [Suspect]
     Active Substance: NINTEDANIB
     Dates: start: 201909
  3. ACETYLSALICYLIC ACID [Concomitant]
     Active Substance: ASPIRIN
     Indication: PRODUCT USED FOR UNKNOWN INDICATION
     Route: 065
     Dates: start: 20201026, end: 20201104
  4. OFEV [Suspect]
     Active Substance: NINTEDANIB
     Indication: IDIOPATHIC PULMONARY FIBROSIS
     Route: 065
     Dates: start: 20180622, end: 201909

REACTIONS (13)
  - Idiopathic pulmonary fibrosis [Unknown]
  - Cardiac failure [Unknown]
  - Dizziness [Unknown]
  - Malaise [Unknown]
  - Depression [Unknown]
  - Acute myocardial infarction [Unknown]
  - Dyspnoea [Unknown]
  - Weight decreased [Unknown]
  - Coronary artery disease [Unknown]
  - Asthenia [Unknown]
  - COVID-19 pneumonia [Recovered/Resolved]
  - Cardiac failure [Unknown]
  - Nausea [Unknown]

NARRATIVE: CASE EVENT DATE: 201909
